FAERS Safety Report 20841788 (Version 1)
Quarter: 2022Q2

REPORT INFORMATION
  Report Type: Spontaneous
  Country: US (occurrence: US)
  Receive Date: 20220518
  Receipt Date: 20220518
  Transmission Date: 20220720
  Serious: Yes (Other)
  Sender: FDA-Public Use
  Company Number: US-Accord-260956

PATIENT
  Age: 88 Year
  Sex: Female
  Weight: 54.43 kg

DRUGS (13)
  1. LEVOTHYROXINE [Suspect]
     Active Substance: LEVOTHYROXINE
     Indication: Thyroid disorder
     Route: 048
     Dates: start: 20220317
  2. DIGOXIN [Concomitant]
     Active Substance: DIGOXIN
     Dosage: 0.125MG/ORAL/ONCE A DAY
  3. VITAMIN B [Concomitant]
     Active Substance: VITAMIN B
     Dosage: ONCE A DAY
  4. VITAMIN B12 [Concomitant]
     Active Substance: CYANOCOBALAMIN
     Dosage: ONCE A DAY
  5. VITAMIN B3 [Concomitant]
     Active Substance: NIACIN
     Dosage: ONCE A DAY
  6. VITAMIN B4 [Concomitant]
     Dosage: ONCE A DAY
  7. FLOVENT [Concomitant]
     Active Substance: FLUTICASONE PROPIONATE
     Dosage: 110MG/ 2 PUFFS PER NIGHT
  8. GABAPENTIN [Concomitant]
     Active Substance: GABAPENTIN
     Dosage: 3-4 DROPS IN WATER AT NIGHT
  9. TYLENOL [Concomitant]
     Active Substance: ACETAMINOPHEN
     Dosage: AT NIGHT
  10. NITROGLYCERIN [Concomitant]
     Active Substance: NITROGLYCERIN
     Dosage: AS NEEDED
  11. NITROGLYCERIN [Concomitant]
     Active Substance: NITROGLYCERIN
     Dosage: AS NEEDED
  12. VITAMIN D [Concomitant]
     Active Substance: VITAMIN D NOS
     Dosage: ONCE A DAY
  13. CALCIUM CARBONATE [Concomitant]
     Active Substance: CALCIUM CARBONATE
     Dosage: ONCE A DAY

REACTIONS (7)
  - Oropharyngeal discomfort [Not Recovered/Not Resolved]
  - Aphonia [Not Recovered/Not Resolved]
  - Atrial fibrillation [Not Recovered/Not Resolved]
  - Malaise [Not Recovered/Not Resolved]
  - Chest pain [Not Recovered/Not Resolved]
  - Palpitations [Not Recovered/Not Resolved]
  - Product substitution issue [Unknown]

NARRATIVE: CASE EVENT DATE: 20220407
